FAERS Safety Report 5108183-5 (Version None)
Quarter: 2006Q3

REPORT INFORMATION
  Report Type: 
  Country: None (occurrence: None)
  Receive Date: 20060919
  Receipt Date: 20060815
  Transmission Date: 20061208
  Serious: Yes (Other)
  Sender: FDA-Public Use
  Company Number: US-ROCHE-459822

PATIENT
  Age: 55 Year
  Sex: Female
  Weight: 89.8 kg

DRUGS (4)
  1. PEGASYS [Suspect]
     Route: 065
     Dates: start: 20060614
  2. COPEGUS [Suspect]
     Route: 048
     Dates: start: 20060614
  3. LORTAB [Concomitant]
  4. ANTIHYPERTENSIVE NOS [Concomitant]
     Indication: HYPERTENSION

REACTIONS (16)
  - ABDOMINAL PAIN [None]
  - ASTHENIA [None]
  - BLOOD URIC ACID INCREASED [None]
  - CONSTIPATION [None]
  - DIARRHOEA [None]
  - DYSPHONIA [None]
  - FALL [None]
  - FATIGUE [None]
  - HEADACHE [None]
  - HYPOAESTHESIA [None]
  - INJECTION SITE PAIN [None]
  - NAUSEA [None]
  - PARAESTHESIA [None]
  - PARALYSIS [None]
  - PROCTALGIA [None]
  - VISUAL DISTURBANCE [None]
